FAERS Safety Report 24406361 (Version 1)
Quarter: 2024Q4

REPORT INFORMATION
  Report Type: Spontaneous
  Country: JP (occurrence: JP)
  Receive Date: 20241007
  Receipt Date: 20241007
  Transmission Date: 20250115
  Serious: Yes (Hospitalization, Disabling)
  Sender: SANDOZ
  Company Number: JP-MLMSERVICE-20240923-PI206182-00218-1

PATIENT
  Age: 62 Year
  Sex: Female

DRUGS (2)
  1. METHOTREXATE [Suspect]
     Active Substance: METHOTREXATE
     Indication: Sjogren^s syndrome
     Dosage: 6 MG
     Route: 065
  2. METHOTREXATE [Suspect]
     Active Substance: METHOTREXATE
     Indication: Rheumatoid arthritis

REACTIONS (6)
  - Herpes ophthalmic [Recovered/Resolved]
  - Eye haemorrhage [Recovered/Resolved]
  - Ocular lymphoma [Recovered/Resolved]
  - Diffuse large B-cell lymphoma [Recovered/Resolved]
  - Herpes simplex [Recovered/Resolved]
  - Hypopyon [Recovered/Resolved]
